FAERS Safety Report 7786065-8 (Version None)
Quarter: 2011Q3

REPORT INFORMATION
  Report Type: 
  Country: None (occurrence: None)
  Receive Date: 20110929
  Receipt Date: 20110926
  Transmission Date: 20111222
  Serious: Yes (Death, Hospitalization, Other)
  Sender: FDA-Public Use
  Company Number: SI-CELGENEUS-261-50794-11070419

PATIENT
  Age: 80 Year
  Sex: Male

DRUGS (4)
  1. CORDARONE [Concomitant]
     Route: 065
  2. VIDAZA [Suspect]
     Indication: MYELODYSPLASTIC SYNDROME
     Route: 058
     Dates: start: 20101215
  3. VIDAZA [Suspect]
     Route: 058
  4. CYKLOKAPRON [Concomitant]
     Route: 065

REACTIONS (3)
  - DEATH [None]
  - LUNG INFILTRATION [None]
  - THROMBOCYTOPENIA [None]
